FAERS Safety Report 10019152 (Version 1)
Quarter: 2014Q1

REPORT INFORMATION
  Report Type: Spontaneous
  Country: US (occurrence: None)
  Receive Date: 20140314
  Receipt Date: 20140314
  Transmission Date: 20141002
  Serious: Yes (Other)
  Sender: FDA-Public Use
  Company Number: None

PATIENT
  Age: 18 Year
  Sex: Female
  Weight: 56.7 kg

DRUGS (1)
  1. SULFAMETHOXAZOLE/TRIMETHOPRIM [Suspect]
     Indication: ACNE
     Dosage: 1 TABLET BID ORAL
     Route: 048
     Dates: start: 20140107, end: 20140114

REACTIONS (2)
  - Pruritus [None]
  - Rash generalised [None]
